FAERS Safety Report 21404779 (Version 1)
Quarter: 2022Q3

REPORT INFORMATION
  Report Type: Spontaneous
  Country: US (occurrence: None)
  Receive Date: 20220930
  Receipt Date: 20220930
  Transmission Date: 20221026
  Serious: Yes (Death)
  Sender: FDA-Public Use
  Company Number: None

PATIENT
  Age: 1 Year
  Sex: Male

DRUGS (1)
  1. SILDENAFIL FOR ORAL SUSPENSION [Suspect]
     Active Substance: SILDENAFIL CITRATE
     Dosage: OTHER QUANTITY : 0.5ML (5MG);?FREQUENCY : EVERY 8 HOURS;?OTHER ROUTE : J TUBE;?
     Route: 050

REACTIONS (1)
  - Death [None]

NARRATIVE: CASE EVENT DATE: 20220821
